FAERS Safety Report 16832976 (Version 3)
Quarter: 2020Q1

REPORT INFORMATION
  Report Type: Spontaneous
  Country: JP (occurrence: JP)
  Receive Date: 20190920
  Receipt Date: 20200221
  Transmission Date: 20200409
  Serious: Yes (Other)
  Sender: FDA-Public Use
  Company Number: JP-KYOWAKIRIN-2019AKK014708

PATIENT

DRUGS (213)
  1. NOVAMIN [PROCHLORPERAZINE MALEATE] [Concomitant]
     Dosage: 5 MG, TID
     Route: 048
     Dates: start: 20150721, end: 20150821
  2. OXINORM [OXYCODONE HYDROCHLORIDE] [Concomitant]
     Active Substance: OXYCODONE HYDROCHLORIDE
     Dosage: 2.5 MG
     Route: 048
     Dates: start: 20150731, end: 20150731
  3. OXYCODONE [OXYCODONE HYDROCHLORIDE] [Concomitant]
     Active Substance: OXYCODONE HYDROCHLORIDE
     Dosage: 5 MG, BID
     Route: 048
     Dates: start: 20150731, end: 20150826
  4. AZUNOL GARGLE LIQUID [Concomitant]
     Dosage: UNK
     Route: 049
     Dates: start: 20150826
  5. MAGMITT [Concomitant]
     Active Substance: MAGNESIUM OXIDE
     Dosage: 500 MG, TID
     Route: 048
     Dates: start: 20150801, end: 20150812
  6. PURIFIED WATER [Concomitant]
     Active Substance: WATER
     Dosage: 440 ML
     Route: 049
     Dates: start: 20150814, end: 20150814
  7. URSODEOXYCHOLIC ACID [Concomitant]
     Active Substance: URSODIOL
     Dosage: 200 MG, BID
     Route: 048
     Dates: start: 20150803, end: 20150803
  8. ALBUMIN [Concomitant]
     Active Substance: ALBUMIN HUMAN
     Dosage: 50 ML
     Route: 042
     Dates: start: 20150731, end: 20150803
  9. POLARAMINE [Concomitant]
     Active Substance: DEXCHLORPHENIRAMINE MALEATE
     Dosage: 5 MG
     Route: 065
     Dates: start: 20150826, end: 20150826
  10. GLUCOSE [Concomitant]
     Active Substance: DEXTROSE
     Dosage: 250 ML
     Route: 065
     Dates: start: 20150909, end: 20150909
  11. PREDONINE [PREDNISOLONE SODIUM SUCCINATE] [Concomitant]
     Active Substance: PREDNISOLONE SODIUM SUCCINATE
     Dosage: 5 MG
     Route: 065
     Dates: start: 20150809, end: 20150809
  12. MAXIPIME [Concomitant]
     Active Substance: CEFEPIME HYDROCHLORIDE
     Dosage: 2000 MG, BID
     Route: 065
     Dates: start: 20150809, end: 20150810
  13. MAXIPIME [Concomitant]
     Active Substance: CEFEPIME HYDROCHLORIDE
     Dosage: 2000 MG, BID
     Route: 065
     Dates: start: 20151123, end: 20151127
  14. LACTEC [Concomitant]
     Active Substance: CALCIUM CHLORIDE ANHYDROUS\POTASSIUM CHLORIDE\SODIUM CHLORIDE\SODIUM LACTATE
     Dosage: 2000 ML
     Route: 065
     Dates: start: 20150730, end: 20150803
  15. LASIX [Concomitant]
     Active Substance: FUROSEMIDE
     Dosage: UNK
     Route: 065
     Dates: start: 20150912, end: 20150918
  16. PROEMEND [Concomitant]
     Active Substance: FOSAPREPITANT
     Dosage: 150 MG, 1X/WEEK
     Route: 065
     Dates: start: 20150902, end: 20150916
  17. ACELIO [Concomitant]
     Active Substance: ACETAMINOPHEN
     Dosage: 5000 MG
     Route: 065
     Dates: start: 20150926, end: 20150926
  18. ACELIO [Concomitant]
     Active Substance: ACETAMINOPHEN
     Dosage: 1200 MG
     Route: 065
     Dates: start: 20151008, end: 20151008
  19. VFEND [Concomitant]
     Active Substance: VORICONAZOLE
     Dosage: 300 MG, BID
     Route: 065
     Dates: start: 20150902, end: 20150902
  20. CERCINE [Concomitant]
     Active Substance: DIAZEPAM
     Dosage: 10 MG
     Route: 065
     Dates: start: 20151018, end: 20151018
  21. VICCLOX [ACICLOVIR] [Concomitant]
     Dosage: 250 MG, TID
     Route: 065
     Dates: start: 20151009, end: 20151124
  22. DEXART [Concomitant]
     Active Substance: DEXAMETHASONE SODIUM PHOSPHATE
     Dosage: 0.5 DF
     Route: 065
     Dates: start: 20151019, end: 20151019
  23. SOLDEM 1 [Concomitant]
     Active Substance: DEXTROSE\SODIUM CHLORIDE\SODIUM LACTATE
     Dosage: 500 ML
     Route: 065
     Dates: start: 20150804, end: 20150807
  24. MYSER [DIFLUPREDNATE] [Concomitant]
     Dosage: UNK
     Route: 061
     Dates: start: 20150722
  25. HACHIAZULE [SODIUM BICARBONATE;SODIUM GUALENATE] [Concomitant]
     Dosage: 10 G
     Route: 049
     Dates: start: 20150811, end: 20150811
  26. HACHIAZULE [SODIUM BICARBONATE;SODIUM GUALENATE] [Concomitant]
     Dosage: 10 G
     Route: 049
     Dates: start: 20150814, end: 20150814
  27. MEPTIN [Concomitant]
     Active Substance: PROCATEROL HYDROCHLORIDE
     Dosage: 0.3 ML
     Dates: start: 20151125, end: 20151125
  28. SODIUM CHLORIDE. [Concomitant]
     Active Substance: SODIUM CHLORIDE
     Dosage: 60 ML
     Route: 065
     Dates: start: 20150812, end: 20150817
  29. KCL [Concomitant]
     Active Substance: POTASSIUM CHLORIDE
     Dosage: 30 ML
     Route: 065
     Dates: start: 20151028, end: 20151124
  30. SAXIZON [Concomitant]
     Active Substance: HYDROCORTISONE SODIUM SUCCINATE
     Dosage: 200 MG, 1X/WEEK
     Route: 065
     Dates: start: 20150805, end: 20150916
  31. SAXIZON [Concomitant]
     Active Substance: HYDROCORTISONE SODIUM SUCCINATE
     Dosage: 100 MG
     Route: 065
     Dates: start: 20151107, end: 20151108
  32. NEUTROGIN [Concomitant]
     Active Substance: LENOGRASTIM
     Dosage: 100 UG
     Route: 065
     Dates: start: 20150806, end: 20150811
  33. NEUTROGIN [Concomitant]
     Active Substance: LENOGRASTIM
     Dosage: 100 UG
     Route: 065
     Dates: start: 20150904, end: 20150907
  34. NEUTROGIN [Concomitant]
     Active Substance: LENOGRASTIM
     Dosage: 100 UG
     Route: 065
     Dates: start: 20150919, end: 20150928
  35. GLUCOSE [Concomitant]
     Active Substance: DEXTROSE
     Dosage: 250 ML
     Route: 065
     Dates: start: 20150805, end: 20150805
  36. GLUCOSE [Concomitant]
     Active Substance: DEXTROSE
     Dosage: 500 ML
     Route: 065
     Dates: start: 20150812, end: 20150812
  37. PREDONINE [PREDNISOLONE SODIUM SUCCINATE] [Concomitant]
     Active Substance: PREDNISOLONE SODIUM SUCCINATE
     Dosage: 40 MG
     Route: 065
     Dates: start: 20150802, end: 20150803
  38. PREDONINE [PREDNISOLONE SODIUM SUCCINATE] [Concomitant]
     Active Substance: PREDNISOLONE SODIUM SUCCINATE
     Dosage: 60 MG
     Route: 065
     Dates: start: 20150805, end: 20150805
  39. PREDONINE [PREDNISOLONE SODIUM SUCCINATE] [Concomitant]
     Active Substance: PREDNISOLONE SODIUM SUCCINATE
     Dosage: 60 MG
     Route: 065
     Dates: start: 20150916, end: 20150918
  40. MAXIPIME [Concomitant]
     Active Substance: CEFEPIME HYDROCHLORIDE
     Dosage: 2000 MG
     Route: 065
     Dates: start: 20150808, end: 20150808
  41. MEROPEN [MEROPENEM TRIHYDRATE] [Concomitant]
     Active Substance: MEROPENEM
     Dosage: 1000 MG, QID
     Route: 065
     Dates: start: 20150811, end: 20150811
  42. MEROPEN [MEROPENEM TRIHYDRATE] [Concomitant]
     Active Substance: MEROPENEM
     Dosage: 1000 MG, TID
     Route: 065
     Dates: start: 20151026, end: 20151116
  43. LASIX [Concomitant]
     Active Substance: FUROSEMIDE
     Dosage: UNK
     Route: 065
     Dates: start: 20150822, end: 20150908
  44. LASIX [Concomitant]
     Active Substance: FUROSEMIDE
     Dosage: UNK
     Route: 065
     Dates: start: 20151019, end: 20151124
  45. GRANISETRON [Concomitant]
     Active Substance: GRANISETRON
     Dosage: 3 MG, 1X/WEEK
     Route: 065
     Dates: start: 20150729, end: 20150805
  46. GRANISETRON [Concomitant]
     Active Substance: GRANISETRON
     Dosage: 3 MG
     Route: 065
     Dates: start: 20150812, end: 20150814
  47. GRANISETRON [Concomitant]
     Active Substance: GRANISETRON
     Dosage: 3 MG, 1X/WEEK
     Route: 065
     Dates: start: 20150902, end: 20150909
  48. ETOPOSIDE. [Concomitant]
     Active Substance: ETOPOSIDE
     Dosage: 130 MG
     Route: 065
     Dates: start: 20150916, end: 20150918
  49. FINIBAX [Concomitant]
     Active Substance: DORIPENEM MONOHYDRATE
     Dosage: 500 MG, TID
     Route: 065
     Dates: start: 20150821, end: 20150826
  50. OMEPRAZOLE. [Concomitant]
     Active Substance: OMEPRAZOLE
     Dosage: 20 MG, BID
     Route: 065
     Dates: start: 20151027, end: 20151120
  51. VFEND [Concomitant]
     Active Substance: VORICONAZOLE
     Dosage: 180 MG, BID
     Route: 065
     Dates: start: 20150903, end: 20151130
  52. DEXART [Concomitant]
     Active Substance: DEXAMETHASONE SODIUM PHOSPHATE
     Dosage: 1 DF
     Route: 065
     Dates: start: 20151014, end: 20151015
  53. ROPION [Concomitant]
     Active Substance: FLURBIPROFEN AXETIL
     Dosage: 50 MG
     Route: 065
     Dates: start: 20151109, end: 20151109
  54. BFLUID [Concomitant]
     Active Substance: AMINO ACIDS\DEXTROSE\ELECTROLYTES NOS\VITAMINS
     Dosage: 500 ML
     Route: 065
     Dates: start: 20151209, end: 20151211
  55. GLYCERIN [GLYCEROL] [Concomitant]
     Dosage: 50 ML
     Route: 049
     Dates: start: 20150814, end: 20150814
  56. HALIZON [Concomitant]
     Active Substance: AMPHOTERICIN B
     Dosage: 480 ML
     Route: 049
     Dates: start: 20150807, end: 20150807
  57. URSODEOXYCHOLIC ACID [Concomitant]
     Active Substance: URSODIOL
     Dosage: 100 MG, TID
     Route: 048
     Dates: start: 20150803, end: 20150826
  58. LOPERAMIDE HYDROCHLORIDE. [Concomitant]
     Active Substance: LOPERAMIDE HYDROCHLORIDE
     Dosage: 1 MG
     Route: 048
     Dates: start: 20151114, end: 20151114
  59. ADRIACIN [Concomitant]
     Active Substance: DOXORUBICIN HYDROCHLORIDE
     Dosage: 60 MG
     Route: 065
     Dates: start: 20150729, end: 20150729
  60. ENDOXAN [CYCLOPHOSPHAMIDE] [Concomitant]
     Active Substance: CYCLOPHOSPHAMIDE
     Dosage: 480 MG
     Route: 065
     Dates: start: 20150902, end: 20150902
  61. ONCOVIN [Concomitant]
     Active Substance: VINCRISTINE SULFATE
     Dosage: 1.4 MG
     Route: 065
     Dates: start: 20150729, end: 20150729
  62. KCL [Concomitant]
     Active Substance: POTASSIUM CHLORIDE
     Dosage: 20 ML
     Route: 065
     Dates: start: 20150826, end: 20150908
  63. KCL [Concomitant]
     Active Substance: POTASSIUM CHLORIDE
     Dosage: 10 ML
     Route: 065
     Dates: start: 20151125, end: 20151211
  64. CYMERIN [Concomitant]
     Active Substance: RANIMUSTINE
     Dosage: 83 MG
     Route: 065
     Dates: start: 20150909, end: 20150909
  65. FUNGUARD [Concomitant]
     Active Substance: MICAFUNGIN SODIUM
     Dosage: 150 MG
     Route: 065
     Dates: start: 20150821, end: 20150901
  66. PARAPLATIN [Concomitant]
     Active Substance: CARBOPLATIN
     Dosage: 340 MG
     Route: 065
     Dates: start: 20150916, end: 20150916
  67. PRIMPERAN [Concomitant]
     Active Substance: METOCLOPRAMIDE HYDROCHLORIDE
     Dosage: 10 MG
     Route: 065
     Dates: start: 20150730, end: 20150730
  68. PREDONINE [PREDNISOLONE SODIUM SUCCINATE] [Concomitant]
     Active Substance: PREDNISOLONE SODIUM SUCCINATE
     Dosage: 60 MG
     Route: 065
     Dates: start: 20150812, end: 20150814
  69. PREDONINE [PREDNISOLONE SODIUM SUCCINATE] [Concomitant]
     Active Substance: PREDNISOLONE SODIUM SUCCINATE
     Dosage: 20 MG
     Route: 065
     Dates: start: 20150816, end: 20150816
  70. PREDONINE [PREDNISOLONE SODIUM SUCCINATE] [Concomitant]
     Active Substance: PREDNISOLONE SODIUM SUCCINATE
     Dosage: 25 MG
     Route: 065
     Dates: start: 20151124, end: 20151206
  71. FILDESIN [Concomitant]
     Active Substance: VINDESINE SULFATE
     Dosage: 3.3 MG
     Route: 065
     Dates: start: 20150916, end: 20150916
  72. MAXIPIME [Concomitant]
     Active Substance: CEFEPIME HYDROCHLORIDE
     Dosage: 2000 MG
     Route: 065
     Dates: start: 20150930, end: 20150930
  73. MAXIPIME [Concomitant]
     Active Substance: CEFEPIME HYDROCHLORIDE
     Dosage: 2000 MG, BID
     Route: 065
     Dates: start: 20151007, end: 20151009
  74. MEROPEN [MEROPENEM TRIHYDRATE] [Concomitant]
     Active Substance: MEROPENEM
     Dosage: 1000 MG
     Route: 065
     Dates: start: 20150810, end: 20150810
  75. MEROPEN [MEROPENEM TRIHYDRATE] [Concomitant]
     Active Substance: MEROPENEM
     Dosage: 1000 MG, TID
     Route: 065
     Dates: start: 20150812, end: 20150820
  76. MEROPEN [MEROPENEM TRIHYDRATE] [Concomitant]
     Active Substance: MEROPENEM
     Dosage: 1000 MG, TID
     Route: 065
     Dates: start: 20151009, end: 20151016
  77. LASIX [Concomitant]
     Active Substance: FUROSEMIDE
     Dosage: 40 MG
     Route: 065
     Dates: start: 20151207, end: 20151207
  78. PROEMEND [Concomitant]
     Active Substance: FOSAPREPITANT
     Dosage: 50 MG
     Route: 065
     Dates: start: 20150812, end: 20150812
  79. BUSCOPAN [Concomitant]
     Active Substance: BUTYLSCOPOLAMINE BROMIDE
     Dosage: 20 MG
     Route: 065
     Dates: start: 20151007, end: 20151007
  80. MEYLON [Concomitant]
     Active Substance: SODIUM BICARBONATE
     Dosage: 20 ML
     Route: 065
     Dates: start: 20151017, end: 20151017
  81. TEICOPLANIN [Concomitant]
     Active Substance: TEICOPLANIN
     Dosage: 400 MG, QD
     Route: 065
     Dates: start: 20151107, end: 20151113
  82. DIBASIC POTASSIUM PHOSPHATE [Concomitant]
     Active Substance: POTASSIUM PHOSPHATE, DIBASIC
     Dosage: 20 ML
     Route: 065
     Dates: start: 20151109, end: 20151201
  83. ROPION [Concomitant]
     Active Substance: FLURBIPROFEN AXETIL
     Dosage: UNK
     Route: 065
     Dates: start: 20151102, end: 20151107
  84. NEXIUM [Concomitant]
     Active Substance: ESOMEPRAZOLE MAGNESIUM
     Dosage: 20 MG, QD
     Route: 048
     Dates: start: 20150728, end: 20151028
  85. LOXOPROFEN EMEC [Concomitant]
     Active Substance: LOXOPROFEN
     Dosage: 60 MG
     Route: 048
     Dates: start: 20150803, end: 20150803
  86. CALONAL [Concomitant]
     Active Substance: ACETAMINOPHEN
     Dosage: 600 MG
     Route: 048
     Dates: start: 20150822, end: 20150822
  87. URSODEOXYCHOLIC ACID [Concomitant]
     Active Substance: URSODIOL
     Dosage: 200 MG, TID
     Route: 048
     Dates: start: 20151008, end: 20151104
  88. URSODEOXYCHOLIC ACID [Concomitant]
     Active Substance: URSODIOL
     Dosage: 200 MG, TID
     Route: 048
     Dates: start: 20151110, end: 20151225
  89. PREDONINE [Concomitant]
     Active Substance: PREDNISOLONE
     Dosage: 10 MG, QD
     Route: 048
     Dates: start: 20151218, end: 20151225
  90. ALBUMIN [Concomitant]
     Active Substance: ALBUMIN HUMAN
     Dosage: 50 ML
     Route: 042
     Dates: start: 20151103, end: 20151105
  91. SODIUM CHLORIDE. [Concomitant]
     Active Substance: SODIUM CHLORIDE
     Dosage: 60 ML
     Route: 065
     Dates: start: 20151024, end: 20151026
  92. SODIUM CHLORIDE. [Concomitant]
     Active Substance: SODIUM CHLORIDE
     Dosage: 40 ML
     Route: 065
     Dates: start: 20151027, end: 20151031
  93. SEISHOKU [Concomitant]
     Active Substance: SODIUM CHLORIDE
     Dosage: UNK
     Route: 065
     Dates: start: 20150728
  94. ONCOVIN [Concomitant]
     Active Substance: VINCRISTINE SULFATE
     Dosage: 1.3 MG
     Route: 065
     Dates: start: 20150902, end: 20150902
  95. SOLDEM 3A [Concomitant]
     Active Substance: CARBOHYDRATES\POTASSIUM CHLORIDE\SODIUM CHLORIDE\SODIUM LACTATE
     Dosage: 500 ML
     Route: 065
     Dates: start: 20150808, end: 20151028
  96. PARAPLATIN [Concomitant]
     Active Substance: CARBOPLATIN
     Dosage: 360 MG
     Route: 065
     Dates: start: 20150812, end: 20150812
  97. GLUCOSE [Concomitant]
     Active Substance: DEXTROSE
     Dosage: 500 ML
     Route: 065
     Dates: start: 20150916, end: 20150916
  98. PRIMPERAN [Concomitant]
     Active Substance: METOCLOPRAMIDE HYDROCHLORIDE
     Dosage: 10 MG
     Route: 065
     Dates: start: 20150809, end: 20150809
  99. PRIMPERAN [Concomitant]
     Active Substance: METOCLOPRAMIDE HYDROCHLORIDE
     Dosage: 30 MG
     Route: 065
     Dates: start: 20150915, end: 20150915
  100. PREDONINE [PREDNISOLONE SODIUM SUCCINATE] [Concomitant]
     Active Substance: PREDNISOLONE SODIUM SUCCINATE
     Dosage: 60 MG
     Route: 065
     Dates: start: 20150729, end: 20150801
  101. PREDONINE [PREDNISOLONE SODIUM SUCCINATE] [Concomitant]
     Active Substance: PREDNISOLONE SODIUM SUCCINATE
     Dosage: 10 MG
     Route: 065
     Dates: start: 20151212, end: 20151218
  102. FILDESIN [Concomitant]
     Active Substance: VINDESINE SULFATE
     Dosage: 3.5 MG
     Route: 065
     Dates: start: 20150812, end: 20150812
  103. LASIX [Concomitant]
     Active Substance: FUROSEMIDE
     Dosage: UNK
     Route: 065
     Dates: start: 20150730, end: 20150804
  104. LASIX [Concomitant]
     Active Substance: FUROSEMIDE
     Dosage: 40 MG
     Route: 065
     Dates: start: 20151130, end: 20151130
  105. ETOPOSIDE. [Concomitant]
     Active Substance: ETOPOSIDE
     Dosage: 140 MG
     Route: 065
     Dates: start: 20150812, end: 20150814
  106. ELNEOPA NO.2 [Concomitant]
     Active Substance: AMINO ACIDS\DEXTROSE\ELECTROLYTES NOS\MINERALS\VITAMINS
     Dosage: 1500 ML
     Route: 065
     Dates: start: 20151028, end: 20151203
  107. PROGRAF [Concomitant]
     Active Substance: TACROLIMUS
     Dosage: UNK
     Route: 065
     Dates: start: 20151019, end: 20151211
  108. TEICOPLANIN [Concomitant]
     Active Substance: TEICOPLANIN
     Dosage: 400 MG, BID
     Route: 065
     Dates: start: 20151008, end: 20151008
  109. FILGRASTIM BS [FILGRASTIM BIOSIMILAR 1] [Concomitant]
     Dosage: 150 UG
     Route: 065
     Dates: start: 20151031, end: 20151109
  110. PURIFIED WATER [Concomitant]
     Active Substance: WATER
     Dosage: 440 ML
     Route: 049
     Dates: start: 20150811, end: 20150811
  111. SENNOSIDE TOWA [Concomitant]
     Dosage: 24 MG
     Route: 048
     Dates: start: 20150802, end: 20150802
  112. SENNOSIDE TOWA [Concomitant]
     Dosage: 24 MG
     Route: 048
     Dates: start: 20150810, end: 20150810
  113. URSODEOXYCHOLIC ACID [Concomitant]
     Active Substance: URSODIOL
     Dosage: 100 MG
     Route: 048
     Dates: start: 20151111, end: 20151111
  114. SP [DEQUALINIUM CHLORIDE] [Concomitant]
     Dosage: UNK
     Route: 048
     Dates: start: 20151022
  115. BROMHEXINE HYDROCHLORIDE [Concomitant]
     Active Substance: BROMHEXINE HYDROCHLORIDE
     Dosage: 45 ML
     Dates: start: 20151028, end: 20151028
  116. SODIUM PICOSULFATE [Concomitant]
     Active Substance: SODIUM PICOSULFATE
     Dosage: 1 DF
     Route: 048
     Dates: start: 20151126, end: 20151126
  117. PROGRAF [Concomitant]
     Active Substance: TACROLIMUS
     Dosage: 0.16 MG, BID
     Route: 048
     Dates: start: 20151215, end: 20151220
  118. FEBURIC [Concomitant]
     Active Substance: FEBUXOSTAT
     Dosage: 20 MG, QD
     Route: 048
     Dates: start: 20151224, end: 20151225
  119. ALBUMIN [Concomitant]
     Active Substance: ALBUMIN HUMAN
     Dosage: 50 ML
     Route: 042
     Dates: start: 20151029, end: 20151031
  120. ENDOXAN [CYCLOPHOSPHAMIDE] [Concomitant]
     Active Substance: CYCLOPHOSPHAMIDE
     Dosage: 500 MG
     Route: 065
     Dates: start: 20150729, end: 20150729
  121. CYMERIN [Concomitant]
     Active Substance: RANIMUSTINE
     Dosage: 88 MG
     Route: 065
     Dates: start: 20150805, end: 20150805
  122. PRIMPERAN [Concomitant]
     Active Substance: METOCLOPRAMIDE HYDROCHLORIDE
     Dosage: 10 MG
     Route: 065
     Dates: start: 20150818, end: 20150818
  123. PRIMPERAN [Concomitant]
     Active Substance: METOCLOPRAMIDE HYDROCHLORIDE
     Dosage: 20 MG
     Route: 065
     Dates: start: 20150819, end: 20150819
  124. PREDONINE [PREDNISOLONE SODIUM SUCCINATE] [Concomitant]
     Active Substance: PREDNISOLONE SODIUM SUCCINATE
     Dosage: 50 MG
     Route: 065
     Dates: start: 20150728, end: 20150728
  125. MAXIPIME [Concomitant]
     Active Substance: CEFEPIME HYDROCHLORIDE
     Dosage: 2000 MG, TID
     Route: 065
     Dates: start: 20150926, end: 20150926
  126. MAXIPIME [Concomitant]
     Active Substance: CEFEPIME HYDROCHLORIDE
     Dosage: 2000 MG, BID
     Route: 065
     Dates: start: 20150927, end: 20150929
  127. LACTEC [Concomitant]
     Active Substance: CALCIUM CHLORIDE ANHYDROUS\POTASSIUM CHLORIDE\SODIUM CHLORIDE\SODIUM LACTATE
     Dosage: 1000 ML
     Route: 065
     Dates: start: 20150728, end: 20150729
  128. LASIX [Concomitant]
     Active Substance: FUROSEMIDE
     Dosage: UNK
     Route: 065
     Dates: start: 20151126, end: 20151128
  129. GRANISETRON [Concomitant]
     Active Substance: GRANISETRON
     Dosage: 3 MG, BID
     Route: 065
     Dates: start: 20151014, end: 20151018
  130. HEPARIN NA LOCK [Concomitant]
     Active Substance: HEPARIN SODIUM
     Dosage: 10 ML
     Route: 065
     Dates: start: 20150729, end: 20150731
  131. ACELIO [Concomitant]
     Active Substance: ACETAMINOPHEN
     Dosage: 4000 MG
     Route: 065
     Dates: start: 20150927, end: 20151002
  132. ACELIO [Concomitant]
     Active Substance: ACETAMINOPHEN
     Dosage: 1000 MG
     Route: 065
     Dates: start: 20151007, end: 20151007
  133. ACELIO [Concomitant]
     Active Substance: ACETAMINOPHEN
     Dosage: 2800 MG
     Route: 065
     Dates: start: 20151009, end: 20151009
  134. ACELIO [Concomitant]
     Active Substance: ACETAMINOPHEN
     Dosage: 1800 MG
     Route: 065
     Dates: start: 20151010, end: 20151013
  135. GLYCEOL [Concomitant]
     Active Substance: GLYCERIN
     Dosage: 200 ML
     Route: 065
     Dates: start: 20151014, end: 20151015
  136. TEICOPLANIN [Concomitant]
     Active Substance: TEICOPLANIN
     Dosage: 400 MG, BID
     Route: 065
     Dates: start: 20151106, end: 20151106
  137. INTRALIPOS [Concomitant]
     Active Substance: SOYBEAN OIL
     Dosage: 100 ML
     Route: 065
     Dates: start: 20151124, end: 20151204
  138. POTELIGEO [Suspect]
     Active Substance: MOGAMULIZUMAB-KPKC
     Dosage: 50 MG, 1X/WEEK
     Route: 041
     Dates: start: 20150805, end: 20150812
  139. GRAN SYRINGE [Concomitant]
     Dosage: 150 UG
     Route: 065
     Dates: start: 20151025, end: 20151030
  140. GRAN SYRINGE [Concomitant]
     Dosage: 300 UG
     Route: 065
     Dates: start: 20151101, end: 20151109
  141. LAC-B GRANULAR POWDER N [Concomitant]
     Dosage: 1 G, TID
     Route: 048
     Dates: start: 20150722, end: 20150728
  142. NEXIUM [Concomitant]
     Active Substance: ESOMEPRAZOLE MAGNESIUM
     Dosage: 20 MG, QD
     Route: 048
     Dates: start: 20151120, end: 20151225
  143. NOVAMIN [PROCHLORPERAZINE MALEATE] [Concomitant]
     Dosage: 5 MG, BID
     Route: 048
     Dates: start: 20150731, end: 20150731
  144. PRIMPERAN [Concomitant]
     Active Substance: METOCLOPRAMIDE HYDROCHLORIDE
     Dosage: 5 MG
     Route: 048
     Dates: start: 20150827, end: 20150827
  145. PRIMPERAN [Concomitant]
     Active Substance: METOCLOPRAMIDE HYDROCHLORIDE
     Dosage: 5 MG, BID
     Route: 048
     Dates: start: 20150829, end: 20150829
  146. HALIZON [Concomitant]
     Active Substance: AMPHOTERICIN B
     Dosage: 480 ML
     Route: 049
     Dates: start: 20150815, end: 20150815
  147. WHITE PETROLATUM [Concomitant]
     Active Substance: PETROLATUM
     Dosage: UNK
     Route: 061
     Dates: start: 20150917
  148. LEVOFLOXACIN. [Concomitant]
     Active Substance: LEVOFLOXACIN
     Dosage: 500 MG, QD
     Route: 048
     Dates: start: 20151127, end: 20151216
  149. VALIXA [Concomitant]
     Active Substance: VALGANCICLOVIR
     Dosage: 900 MG, BID
     Route: 048
     Dates: start: 20151224, end: 20151225
  150. PROGRAF [Concomitant]
     Active Substance: TACROLIMUS
     Dosage: 0.14 MG, BID
     Route: 048
     Dates: start: 20151221, end: 20151225
  151. ADRIACIN [Concomitant]
     Active Substance: DOXORUBICIN HYDROCHLORIDE
     Dosage: 44 MG
     Route: 065
     Dates: start: 20150805, end: 20150805
  152. ADRIACIN [Concomitant]
     Active Substance: DOXORUBICIN HYDROCHLORIDE
     Dosage: 40 MG
     Route: 065
     Dates: start: 20150909, end: 20150909
  153. KCL [Concomitant]
     Active Substance: POTASSIUM CHLORIDE
     Dosage: 20 ML
     Route: 065
     Dates: start: 20150918, end: 20151027
  154. SAXIZON [Concomitant]
     Active Substance: HYDROCORTISONE SODIUM SUCCINATE
     Dosage: 100 MG, 1X/WEEK
     Route: 065
     Dates: start: 20151020, end: 20151027
  155. NEUTROGIN [Concomitant]
     Active Substance: LENOGRASTIM
     Dosage: 100 UG
     Route: 065
     Dates: start: 20150815, end: 20150824
  156. PREDONINE [PREDNISOLONE SODIUM SUCCINATE] [Concomitant]
     Active Substance: PREDNISOLONE SODIUM SUCCINATE
     Dosage: 20 MG
     Route: 065
     Dates: start: 20150806, end: 20150806
  157. PREDONINE [PREDNISOLONE SODIUM SUCCINATE] [Concomitant]
     Active Substance: PREDNISOLONE SODIUM SUCCINATE
     Dosage: 20 MG
     Route: 065
     Dates: start: 20151207, end: 20151208
  158. PREDONINE [PREDNISOLONE SODIUM SUCCINATE] [Concomitant]
     Active Substance: PREDNISOLONE SODIUM SUCCINATE
     Dosage: 5 MG
     Route: 065
     Dates: start: 20151211, end: 20151211
  159. LASIX [Concomitant]
     Active Substance: FUROSEMIDE
     Dosage: UNK
     Route: 065
     Dates: start: 20151202, end: 20151205
  160. ELNEOPA NO.1 [Concomitant]
     Active Substance: AMINO ACIDS\DEXTROSE\ELECTROLYTES NOS\MINERALS\VITAMINS
     Dosage: 1000 ML
     Route: 065
     Dates: start: 20151207, end: 20151208
  161. ACELIO [Concomitant]
     Active Substance: ACETAMINOPHEN
     Dosage: 1000 MG
     Route: 065
     Dates: start: 20150925, end: 20150925
  162. ACELIO [Concomitant]
     Active Substance: ACETAMINOPHEN
     Dosage: 600 MG
     Route: 065
     Dates: start: 20151101, end: 20151101
  163. HAPTOGLOBIN [Concomitant]
     Dosage: 6000 IU
     Route: 065
     Dates: start: 20151020, end: 20151020
  164. GLUCOSE [Concomitant]
     Active Substance: DEXTROSE
     Dosage: 20 ML
     Route: 065
     Dates: start: 20151007, end: 20151007
  165. FLUDARA [Concomitant]
     Active Substance: FLUDARABINE PHOSPHATE
     Dosage: 34 MG
     Route: 065
     Dates: start: 20151014, end: 20151018
  166. METHOTREXATE. [Concomitant]
     Active Substance: METHOTREXATE
     Dosage: 10 MG
     Route: 065
     Dates: start: 20151026, end: 20151026
  167. DEXART [Concomitant]
     Active Substance: DEXAMETHASONE SODIUM PHOSPHATE
     Dosage: 1.5 DF
     Route: 065
     Dates: start: 20151017, end: 20151018
  168. MAGNESIUM SULFATE. [Concomitant]
     Active Substance: MAGNESIUM SULFATE
     Dosage: 40 ML
     Route: 065
     Dates: start: 20151028, end: 20151028
  169. FILGRASTIM BS [FILGRASTIM BIOSIMILAR 1] [Concomitant]
     Dosage: 450 UG
     Route: 065
     Dates: start: 20151110, end: 20151111
  170. BENAMBAX [Concomitant]
     Active Substance: PENTAMIDINE
     Dosage: 300 MG
     Route: 065
     Dates: start: 20151126, end: 20151126
  171. BESOFTEN [Concomitant]
     Active Substance: PENTOSAN POLYSULFATE SODIUM
     Dosage: UNK
     Route: 061
     Dates: start: 20150722
  172. LOXOPROFEN EMEC [Concomitant]
     Active Substance: LOXOPROFEN
     Dosage: 60 MG
     Route: 048
     Dates: start: 20150731, end: 20150731
  173. CALONAL [Concomitant]
     Active Substance: ACETAMINOPHEN
     Dosage: 400 MG
     Route: 048
     Dates: start: 20150730, end: 20150731
  174. CALONAL [Concomitant]
     Active Substance: ACETAMINOPHEN
     Dosage: 400 MG
     Route: 048
     Dates: start: 20150809, end: 20150810
  175. LOPERAMIDE HYDROCHLORIDE. [Concomitant]
     Active Substance: LOPERAMIDE HYDROCHLORIDE
     Dosage: 1 MG
     Route: 048
     Dates: start: 20151022, end: 20151022
  176. VFEND [Concomitant]
     Active Substance: VORICONAZOLE
     Dosage: 200 MG, BID
     Route: 048
     Dates: start: 20151130, end: 20151225
  177. ACICLOVIR [Concomitant]
     Active Substance: ACYCLOVIR
     Dosage: 200 MG, QD
     Route: 048
     Dates: start: 20151124, end: 20151225
  178. VALIXA [Concomitant]
     Active Substance: VALGANCICLOVIR
     Dosage: 900 MG, BID
     Route: 048
     Dates: start: 20151215, end: 20151221
  179. SOLDEM 3A [Concomitant]
     Active Substance: CARBOHYDRATES\POTASSIUM CHLORIDE\SODIUM CHLORIDE\SODIUM LACTATE
     Dosage: 1000 ML
     Route: 065
     Dates: start: 20150729, end: 20150729
  180. PREDONINE [PREDNISOLONE SODIUM SUCCINATE] [Concomitant]
     Active Substance: PREDNISOLONE SODIUM SUCCINATE
     Dosage: 20 MG
     Route: 065
     Dates: start: 20150804, end: 20150804
  181. PREDONINE [PREDNISOLONE SODIUM SUCCINATE] [Concomitant]
     Active Substance: PREDNISOLONE SODIUM SUCCINATE
     Dosage: 60 MG, 1X/WEEK
     Route: 065
     Dates: start: 20150902, end: 20150909
  182. MEROPEN [MEROPENEM TRIHYDRATE] [Concomitant]
     Active Substance: MEROPENEM
     Dosage: 1000 MG, QD
     Route: 065
     Dates: start: 20150821, end: 20150821
  183. LASIX [Concomitant]
     Active Substance: FUROSEMIDE
     Dosage: 20 MG
     Route: 065
     Dates: start: 20150809, end: 20150810
  184. LASIX [Concomitant]
     Active Substance: FUROSEMIDE
     Dosage: 20 MG
     Route: 065
     Dates: start: 20150818, end: 20150818
  185. GRANISETRON [Concomitant]
     Active Substance: GRANISETRON
     Dosage: 3 MG
     Route: 065
     Dates: start: 20150916, end: 20150918
  186. ELNEOPA NO.1 [Concomitant]
     Active Substance: AMINO ACIDS\DEXTROSE\ELECTROLYTES NOS\MINERALS\VITAMINS
     Dosage: 1500 ML
     Route: 065
     Dates: start: 20150804, end: 20151031
  187. ELNEOPA NO.1 [Concomitant]
     Active Substance: AMINO ACIDS\DEXTROSE\ELECTROLYTES NOS\MINERALS\VITAMINS
     Dosage: 1500 ML
     Route: 065
     Dates: start: 20151204, end: 20151206
  188. RASURITEK [Concomitant]
     Active Substance: RASBURICASE
     Dosage: 7.5 MG
     Route: 065
     Dates: start: 20150728, end: 20150731
  189. PROEMEND [Concomitant]
     Active Substance: FOSAPREPITANT
     Dosage: 150 MG
     Route: 065
     Dates: start: 20151017, end: 20151017
  190. ACELIO [Concomitant]
     Active Substance: ACETAMINOPHEN
     Dosage: 1000 MG
     Route: 065
     Dates: start: 20151105, end: 20151105
  191. ACELIO [Concomitant]
     Active Substance: ACETAMINOPHEN
     Dosage: 600 MG
     Route: 065
     Dates: start: 20151106, end: 20151106
  192. ALKERAN [Concomitant]
     Active Substance: MELPHALAN
     Dosage: 96 MG
     Route: 065
     Dates: start: 20151017, end: 20151018
  193. METHOTREXATE. [Concomitant]
     Active Substance: METHOTREXATE
     Dosage: 10 MG
     Route: 065
     Dates: start: 20151023, end: 20151023
  194. MAGNESIUM SULFATE. [Concomitant]
     Active Substance: MAGNESIUM SULFATE
     Dosage: 20 ML
     Route: 065
     Dates: start: 20151029, end: 20151211
  195. POTELIGEO [Suspect]
     Active Substance: MOGAMULIZUMAB-KPKC
     Indication: ADULT T-CELL LYMPHOMA/LEUKAEMIA RECURRENT
     Dosage: 46 MG, 1X/WEEK
     Route: 041
     Dates: start: 20150812, end: 20150916
  196. CALONAL [Concomitant]
     Active Substance: ACETAMINOPHEN
     Dosage: 1200 MG
     Route: 048
     Dates: start: 20150820, end: 20150820
  197. GLYCERIN [GLYCEROL] [Concomitant]
     Dosage: 50 ML
     Route: 049
     Dates: start: 20150811, end: 20150811
  198. PROGRAF [Concomitant]
     Active Substance: TACROLIMUS
     Dosage: 0.25 MG, BID
     Route: 048
     Dates: start: 20151211, end: 20151215
  199. ADRIACIN [Concomitant]
     Active Substance: DOXORUBICIN HYDROCHLORIDE
     Dosage: 55 MG
     Route: 065
     Dates: start: 20150902, end: 20150902
  200. SODIUM CHLORIDE. [Concomitant]
     Active Substance: SODIUM CHLORIDE
     Dosage: 100 ML
     Route: 065
     Dates: start: 20150818, end: 20151023
  201. NEUTROGIN [Concomitant]
     Active Substance: LENOGRASTIM
     Dosage: 100 UG
     Route: 065
     Dates: start: 20150911, end: 20150915
  202. PRIMPERAN [Concomitant]
     Active Substance: METOCLOPRAMIDE HYDROCHLORIDE
     Dosage: 10 MG
     Route: 065
     Dates: start: 20150821, end: 20150821
  203. PREDONINE [PREDNISOLONE SODIUM SUCCINATE] [Concomitant]
     Active Substance: PREDNISOLONE SODIUM SUCCINATE
     Dosage: 10 MG
     Route: 065
     Dates: start: 20150807, end: 20150808
  204. PREDONINE [PREDNISOLONE SODIUM SUCCINATE] [Concomitant]
     Active Substance: PREDNISOLONE SODIUM SUCCINATE
     Dosage: 40 MG
     Route: 065
     Dates: start: 20150815, end: 20150815
  205. PREDONINE [PREDNISOLONE SODIUM SUCCINATE] [Concomitant]
     Active Substance: PREDNISOLONE SODIUM SUCCINATE
     Dosage: 10 MG
     Route: 065
     Dates: start: 20151209, end: 20151210
  206. LASIX [Concomitant]
     Active Substance: FUROSEMIDE
     Dosage: 40 MG
     Route: 065
     Dates: start: 20150910, end: 20150910
  207. LASIX [Concomitant]
     Active Substance: FUROSEMIDE
     Dosage: UNK
     Route: 065
     Dates: start: 20151014, end: 20151017
  208. HEPARIN NA LOCK [Concomitant]
     Active Substance: HEPARIN SODIUM
     Dosage: UNK
     Route: 065
     Dates: start: 20150804, end: 20151218
  209. ACELIO [Concomitant]
     Active Substance: ACETAMINOPHEN
     Dosage: 600 MG, 1X/WEEK
     Route: 065
     Dates: start: 20150826, end: 20150916
  210. STRONGER NEO-MINOPHAGEN C [Concomitant]
     Active Substance: AMMONIUM GLYCYRRHIZATE\CYSTEINE HYDROCHLORIDE\GLYCINE
     Dosage: 40 ML
     Route: 065
     Dates: start: 20150916, end: 20150928
  211. METHOTREXATE. [Concomitant]
     Active Substance: METHOTREXATE
     Dosage: 15 MG
     Route: 065
     Dates: start: 20151021, end: 20151021
  212. TEICOPLANIN [Concomitant]
     Active Substance: TEICOPLANIN
     Dosage: 400 MG, QD
     Route: 065
     Dates: start: 20151009, end: 20151013
  213. SOLDEM 1 [Concomitant]
     Active Substance: DEXTROSE\SODIUM CHLORIDE\SODIUM LACTATE
     Dosage: 500 ML
     Route: 065
     Dates: start: 20151120, end: 20151201

REACTIONS (2)
  - Acute graft versus host disease in liver [Recovering/Resolving]
  - Acute graft versus host disease in skin [Recovering/Resolving]

NARRATIVE: CASE EVENT DATE: 20151108
